FAERS Safety Report 10931259 (Version 2)
Quarter: 2015Q1

REPORT INFORMATION
  Report Type: Spontaneous
  Country: PE (occurrence: PE)
  Receive Date: 20150319
  Receipt Date: 20150330
  Transmission Date: 20150721
  Serious: No
  Sender: FDA-Public Use
  Company Number: PE-TEVA-547512ISR

PATIENT
  Age: 63 Year
  Sex: Female

DRUGS (2)
  1. METFORMIN [Suspect]
     Active Substance: METFORMIN HYDROCHLORIDE
     Indication: DIABETES MELLITUS
     Route: 048
  2. ACEPOT [Suspect]
     Active Substance: BETAMETHASONE DIPROPIONATE\BETAMETHASONE SODIUM PHOSPHATE
     Indication: EPICONDYLITIS
     Dosage: 1 DOSAGE FORMS DAILY; 1 DOSAGE FORM = 1 AMPOULE
     Route: 030
     Dates: start: 20150220, end: 20150220

REACTIONS (2)
  - Blood pressure increased [Recovered/Resolved]
  - Hyperglycaemia [Recovered/Resolved]

NARRATIVE: CASE EVENT DATE: 201502
